FAERS Safety Report 25997175 (Version 2)
Quarter: 2025Q4

REPORT INFORMATION
  Report Type: Report from Study
  Country: CA (occurrence: CA)
  Receive Date: 20251104
  Receipt Date: 20251113
  Transmission Date: 20260118
  Serious: Yes (Death, Other)
  Sender: TAIHO ONCOLOGY INC
  Company Number: CA-TAIHOP-2025-011522

PATIENT
  Age: 63 Year
  Sex: Female

DRUGS (1)
  1. INQOVI [Suspect]
     Active Substance: CEDAZURIDINE\DECITABINE
     Indication: Myelodysplastic syndrome
     Dosage: DECITABINE 35 MG AND CEDAZURIDINE 100 MG; 1 TABLET PER DAY ON DAYS 1-5, EVERY 28 DAYS; CYCLE UNKNOWN
     Route: 048
     Dates: end: 202412

REACTIONS (4)
  - Septic shock [Fatal]
  - Haemorrhage intracranial [Fatal]
  - Neutropenia [Unknown]
  - Thrombocytopenia [Unknown]
